FAERS Safety Report 7967717-3 (Version None)
Quarter: 2011Q4

REPORT INFORMATION
  Report Type: 
  Country: None (occurrence: None)
  Receive Date: 20111209
  Receipt Date: 20111129
  Transmission Date: 20120403
  Serious: Yes (Hospitalization, Disabling)
  Sender: FDA-Public Use
  Company Number: MX-SANOFI-AVENTIS-2011SA078731

PATIENT
  Age: 61 Year
  Sex: Female
  Weight: 69 kg

DRUGS (3)
  1. LANTUS [Suspect]
     Indication: TYPE 2 DIABETES MELLITUS
     Dosage: 42 IU IN THE MORNING AND 18IU AT NIGHT
     Route: 058
     Dates: start: 20090101, end: 20111001
  2. LANTUS [Suspect]
     Dosage: 47 IU IN THE MORNING AND 23IU AT NIGHT
     Route: 058
     Dates: start: 20111001, end: 20111001
  3. LANTUS [Suspect]
     Dosage: 42 IU IN THE MORNING AND 18IU AT NIGHT
     Route: 058
     Dates: start: 20111001

REACTIONS (3)
  - LOWER LIMB FRACTURE [None]
  - DRUG ADMINISTRATION ERROR [None]
  - HYPERGLYCAEMIA [None]
